FAERS Safety Report 5069871-2 (Version None)
Quarter: 2006Q3

REPORT INFORMATION
  Report Type: 
  Country: None (occurrence: None)
  Receive Date: 20060731
  Receipt Date: 20060718
  Transmission Date: 20061208
  Serious: Yes (Other)
  Sender: FDA-Public Use
  Company Number: 2006091175

PATIENT
  Age: 60 Year
  Sex: Female

DRUGS (2)
  1. EPIRUBICIN [Suspect]
     Indication: DRUG USE FOR UNKNOWN INDICATION
     Dosage: 90 MG/M*2 (UNKNOWN), OTHER
  2. CYCLOPHOSPHAMIDE [Concomitant]

REACTIONS (3)
  - INJECTION SITE OEDEMA [None]
  - NAIL DISCOLOURATION [None]
  - PURPURA [None]
